FAERS Safety Report 5882413-4 (Version None)
Quarter: 2008Q3

REPORT INFORMATION
  Report Type: 
  Country: None (occurrence: None)
  Receive Date: 20080913
  Receipt Date: 20080801
  Transmission Date: 20090109
  Serious: No
  Sender: FDA-Public Use
  Company Number: US-ABBOTT-08P-163-0468554-00

PATIENT
  Sex: Female
  Weight: 72.64 kg

DRUGS (2)
  1. HUMIRA [Suspect]
     Indication: RHEUMATOID ARTHRITIS
     Route: 058
     Dates: start: 20070101
  2. BENICAR HCT [Concomitant]
     Indication: HYPERTENSION
     Dosage: 40/25 MG
     Route: 048
     Dates: start: 20060101

REACTIONS (5)
  - ARTHRALGIA [None]
  - BLISTER [None]
  - INJECTION SITE IRRITATION [None]
  - INJECTION SITE PAIN [None]
  - UNDERDOSE [None]
